FAERS Safety Report 9715582 (Version 2)
Quarter: 2013Q4

REPORT INFORMATION
  Report Type: Spontaneous
  Country: FR (occurrence: FR)
  Receive Date: 20131127
  Receipt Date: 20131127
  Transmission Date: 20140711
  Serious: Yes (Hospitalization)
  Sender: FDA-Public Use
  Company Number: FR-ROCHE-1303769

PATIENT
  Age: 89 Year
  Sex: Female

DRUGS (10)
  1. BACTRIM FORTE [Suspect]
     Indication: URINARY TRACT INFECTION
     Route: 048
     Dates: start: 20130923, end: 20131001
  2. VOGALENE LYOC [Suspect]
     Indication: PRODUCT USED FOR UNKNOWN INDICATION
     Route: 048
     Dates: start: 20130928
  3. ROCEPHINE [Suspect]
     Indication: URINARY TRACT INFECTION
     Route: 042
     Dates: start: 20131001, end: 20131004
  4. AMIKACIN [Suspect]
     Indication: PRODUCT USED FOR UNKNOWN INDICATION
     Route: 065
     Dates: end: 20131001
  5. DOLIPRANE [Suspect]
     Indication: PRODUCT USED FOR UNKNOWN INDICATION
     Route: 048
     Dates: start: 20130928
  6. LOSARTAN POTASSIUM [Concomitant]
     Indication: PRODUCT USED FOR UNKNOWN INDICATION
     Route: 048
     Dates: end: 20131001
  7. REMINYL [Concomitant]
     Route: 048
  8. LOXEN [Concomitant]
     Route: 048
     Dates: end: 20131001
  9. LOXEN [Concomitant]
     Route: 048
     Dates: end: 20131008
  10. EBIXA [Concomitant]
     Route: 048
     Dates: end: 20131004

REACTIONS (6)
  - Renal failure acute [Recovered/Resolved]
  - Hyperkalaemia [Recovered/Resolved]
  - Anuria [Recovered/Resolved]
  - Rash maculo-papular [Unknown]
  - Pruritus [Unknown]
  - Purpura [Unknown]
